FAERS Safety Report 9399913 (Version 1)
Quarter: 2013Q3

REPORT INFORMATION
  Report Type: Spontaneous
  Country: KR (occurrence: KR)
  Receive Date: 20130715
  Receipt Date: 20130715
  Transmission Date: 20140515
  Serious: Yes (Death, Other)
  Sender: FDA-Public Use
  Company Number: KR-ROXANE LABORATORIES, INC.-2013-RO-01131RO

PATIENT
  Age: 38 Year
  Sex: Male

DRUGS (5)
  1. DEXAMETHASONE [Suspect]
     Indication: PERIPHERAL T-CELL LYMPHOMA UNSPECIFIED
  2. ALEMTUZUMAB [Suspect]
     Indication: PERIPHERAL T-CELL LYMPHOMA UNSPECIFIED
  3. ALEMTUZUMAB [Suspect]
     Indication: SALVAGE THERAPY
  4. CYTARABINE [Suspect]
     Indication: PERIPHERAL T-CELL LYMPHOMA UNSPECIFIED
  5. CISPLATIN [Suspect]
     Indication: PERIPHERAL T-CELL LYMPHOMA UNSPECIFIED

REACTIONS (2)
  - Hepatic failure [Fatal]
  - Hepatitis B [Unknown]
